FAERS Safety Report 9723813 (Version 1)
Quarter: 2013Q4

REPORT INFORMATION
  Report Type: Spontaneous
  Country: FR (occurrence: FR)
  Receive Date: 20131202
  Receipt Date: 20131202
  Transmission Date: 20140711
  Serious: Yes (Disabling, Other)
  Sender: FDA-Public Use
  Company Number: FR-PFIZER INC-2013336845

PATIENT
  Age: 70 Year
  Sex: Male
  Weight: 61 kg

DRUGS (1)
  1. EFFEXOR [Suspect]
     Dosage: UNK
     Route: 048
     Dates: start: 201304, end: 20130624

REACTIONS (5)
  - Acute myeloid leukaemia [Unknown]
  - Chorea [Recovered/Resolved]
  - Dystonia [Unknown]
  - Fall [Unknown]
  - Gait disturbance [Unknown]
